FAERS Safety Report 5662959-4 (Version None)
Quarter: 2008Q1

REPORT INFORMATION
  Report Type: 
  Country: None (occurrence: None)
  Receive Date: 20080313
  Receipt Date: 20080229
  Transmission Date: 20080703
  Serious: Yes (Hospitalization)
  Sender: FDA-Public Use
  Company Number: JP-ASTRAZENECA-2008SE01335

PATIENT
  Age: 77 Year
  Sex: Male

DRUGS (5)
  1. BLOPRESS TABLETS 4 [Suspect]
     Indication: HYPERTENSION
     Route: 048
     Dates: end: 20080220
  2. NIFEDIPINE [Concomitant]
     Route: 048
  3. PANALDINE [Concomitant]
     Route: 048
  4. MINZAIN [Concomitant]
     Route: 048
  5. KETOPROFEN [Concomitant]
     Route: 062

REACTIONS (1)
  - TONGUE OEDEMA [None]
